FAERS Safety Report 17492416 (Version 1)
Quarter: 2020Q1

REPORT INFORMATION
  Report Type: Spontaneous
  Country: US (occurrence: US)
  Receive Date: 20200304
  Receipt Date: 20200304
  Transmission Date: 20200409
  Serious: Yes (Death, Hospitalization)
  Sender: FDA-Public Use
  Company Number: US-TEVA-2020-US-1193593

PATIENT
  Age: 50 Year
  Sex: Female

DRUGS (1)
  1. AMLODIPINE [Suspect]
     Active Substance: AMLODIPINE BESYLATE
     Indication: HYPERTENSION
     Dosage: INGESTED 90 TABLETS
     Route: 048

REACTIONS (17)
  - Vomiting [Not Recovered/Not Resolved]
  - Hypotension [Recovering/Resolving]
  - Hyperinsulinaemia [Not Recovered/Not Resolved]
  - Pulmonary embolism [Unknown]
  - Fluid overload [Unknown]
  - Urine output decreased [Not Recovered/Not Resolved]
  - Acute kidney injury [Unknown]
  - Toxicity to various agents [Fatal]
  - Lung infiltration [Not Recovered/Not Resolved]
  - Respiratory distress [Unknown]
  - Lactic acidosis [Recovering/Resolving]
  - Completed suicide [Fatal]
  - Hypoglycaemia [Not Recovered/Not Resolved]
  - Unresponsive to stimuli [Not Recovered/Not Resolved]
  - Intentional overdose [Fatal]
  - Mean arterial pressure decreased [Not Recovered/Not Resolved]
  - Intestinal perforation [Unknown]
